FAERS Safety Report 13486322 (Version 1)
Quarter: 2017Q2

REPORT INFORMATION
  Report Type: Spontaneous
  Country: IR (occurrence: IR)
  Receive Date: 20170426
  Receipt Date: 20170426
  Transmission Date: 20170830
  Serious: Yes (Hospitalization, Other)
  Sender: FDA-Public Use
  Company Number: IR-MYLANLABS-2017M1025307

PATIENT

DRUGS (2)
  1. LETROZOLE. [Suspect]
     Active Substance: LETROZOLE
     Indication: OVULATION INDUCTION
     Dosage: 2.5 MG/DAY, IN DAYS 3 - 7 OF A SPONTANEOUS MENSTRUAL CYCLE (FIRST CYCLE)
     Route: 065
  2. LETROZOLE. [Suspect]
     Active Substance: LETROZOLE
     Dosage: AT A DOSE OF 5 MG/DAY OVER DAYS 3 - 7 OF THE MENSTRUAL CYCLE
     Route: 065

REACTIONS (1)
  - Ovarian cancer [Unknown]
